FAERS Safety Report 10148717 (Version 3)
Quarter: 2014Q2

REPORT INFORMATION
  Report Type: Spontaneous
  Country: JP (occurrence: JP)
  Receive Date: 20140501
  Receipt Date: 20140620
  Transmission Date: 20141212
  Serious: Yes (Disabling)
  Sender: FDA-Public Use
  Company Number: JP-ALLERGAN-1408748US

PATIENT
  Age: 72 Year
  Sex: Male

DRUGS (2)
  1. ALPHAGAN [Suspect]
     Indication: GLAUCOMA
     Dosage: 1 DROP, TWICE A DAY
     Route: 047
     Dates: start: 20140410, end: 20140417
  2. AZORGA [Suspect]
     Indication: PRODUCT USED FOR UNKNOWN INDICATION
     Dosage: 1 DROP IN EACH EYE, TWICE A DAY
     Route: 047
     Dates: start: 20140410, end: 20140417

REACTIONS (2)
  - Keratitis [Recovered/Resolved]
  - Blindness [Recovered/Resolved]
